FAERS Safety Report 4778223-1 (Version None)
Quarter: 2005Q3

REPORT INFORMATION
  Report Type: 
  Country: None (occurrence: None)
  Receive Date: 20050926
  Receipt Date: 20030425
  Transmission Date: 20060218
  Serious: Yes (Other)
  Sender: FDA-Public Use
  Company Number: US-BRISTOL-MYERS SQUIBB COMPANY-12258661

PATIENT
  Age: 36 Year
  Sex: Female

DRUGS (8)
  1. STADOL [Suspect]
     Indication: ARTICULAR DISC DISORDER
     Route: 030
     Dates: start: 19950101, end: 20021001
  2. DEMEROL [Concomitant]
     Route: 030
  3. VALIUM [Concomitant]
  4. TYLENOL W/ CODEINE NO. 2 [Concomitant]
  5. COMPAZINE [Concomitant]
     Route: 030
  6. PHENERGAN [Concomitant]
     Route: 048
  7. OXYCONTIN [Concomitant]
  8. LORCET-HD [Concomitant]

REACTIONS (1)
  - DEPENDENCE [None]
